FAERS Safety Report 23890393 (Version 1)
Quarter: 2024Q2

REPORT INFORMATION
  Report Type: Spontaneous
  Country: CN (occurrence: CN)
  Receive Date: 20240523
  Receipt Date: 20240523
  Transmission Date: 20240715
  Serious: Yes (Hospitalization)
  Sender: FDA-Public Use
  Company Number: CN-BEIGENE-BGN-2024-007509

PATIENT

DRUGS (3)
  1. TISLELIZUMAB [Suspect]
     Active Substance: TISLELIZUMAB
     Indication: Bladder cancer recurrent
     Dosage: 200 MILLIGRAM D1
     Route: 041
     Dates: start: 20240430
  2. CISPLATIN [Suspect]
     Active Substance: CISPLATIN
     Indication: Bladder cancer recurrent
     Dosage: 60 MILLIGRAM D1, D2
     Route: 041
     Dates: start: 20240430
  3. GEMCITABINE HYDROCHLORIDE [Suspect]
     Active Substance: GEMCITABINE HYDROCHLORIDE
     Indication: Bladder cancer recurrent
     Dosage: 1600 MILLIGRAM D1
     Route: 041
     Dates: start: 20240430

REACTIONS (5)
  - Renal failure [Recovering/Resolving]
  - Blood creatinine increased [Recovering/Resolving]
  - Decreased appetite [Recovering/Resolving]
  - Nausea [Recovering/Resolving]
  - Platelet count decreased [Recovering/Resolving]

NARRATIVE: CASE EVENT DATE: 20240506
